FAERS Safety Report 20428887 (Version 1)
Quarter: 2022Q1

REPORT INFORMATION
  Report Type: Spontaneous
  Country: NL (occurrence: NL)
  Receive Date: 20220204
  Receipt Date: 20220204
  Transmission Date: 20220423
  Serious: Yes (Life-Threatening)
  Sender: FDA-Public Use
  Company Number: None

PATIENT
  Age: 67 Year
  Sex: Male
  Weight: 77 kg

DRUGS (4)
  1. GEMCITABINE [Suspect]
     Active Substance: GEMCITABINE
     Indication: Cholangiocarcinoma
     Dosage: STRENGTH:200MG, INFUSION POWDER, 1X PER DAY 1920MG IV
     Dates: start: 20211201
  2. CISPLATIN [Concomitant]
     Active Substance: CISPLATIN
     Dosage: STRENGTH: 1MG/ML, 48MG IV
  3. RIVAROXABAN [Concomitant]
     Active Substance: RIVAROXABAN
     Dosage: STRENGTH:20MG, 20 MG (MILLIGRAM)
  4. VERAPAMIL [Concomitant]
     Active Substance: VERAPAMIL HYDROCHLORIDE
     Dosage: STRENGTH:120MG, 120 MG (MILLIGRAM)

REACTIONS (1)
  - Hepatic encephalopathy [Recovering/Resolving]

NARRATIVE: CASE EVENT DATE: 20211205
